FAERS Safety Report 9713451 (Version 5)
Quarter: 2014Q1

REPORT INFORMATION
  Report Type: Spontaneous
  Country: US (occurrence: US)
  Receive Date: 20131126
  Receipt Date: 20140203
  Transmission Date: 20141002
  Serious: Yes (Hospitalization, Disabling, Other)
  Sender: FDA-Public Use
  Company Number: US-009507513-1111USA03007

PATIENT
  Sex: Female
  Weight: 51.7 kg

DRUGS (5)
  1. FOSAMAX [Suspect]
     Indication: OSTEOPOROSIS
     Dosage: 70 MG, QW
     Route: 048
     Dates: start: 2001, end: 20061221
  2. FOSAMAX [Suspect]
     Dosage: 10 MG, QD
     Route: 048
     Dates: start: 20091028
  3. FOSAMAX PLUS D [Suspect]
     Indication: OSTEOPOROSIS
     Dosage: 70 MG/2800IU
     Route: 048
     Dates: start: 20070724, end: 20071221
  4. ALENDRONATE SODIUM [Suspect]
     Indication: OSTEOPOROSIS
     Dosage: 70 MG, UNK
     Route: 048
     Dates: start: 20080416, end: 20110823
  5. CALCIUM (UNSPECIFIED) [Concomitant]
     Indication: OSTEOPOROSIS

REACTIONS (4)
  - Femur fracture [Recovering/Resolving]
  - Fall [Unknown]
  - Intramedullary rod insertion [Unknown]
  - Confusional state [Recovering/Resolving]
